FAERS Safety Report 9412242 (Version 3)
Quarter: 2013Q3

REPORT INFORMATION
  Report Type: Spontaneous
  Country: JP (occurrence: JP)
  Receive Date: 20130722
  Receipt Date: 20130819
  Transmission Date: 20140515
  Serious: Yes (Hospitalization)
  Sender: FDA-Public Use
  Company Number: JP-ELI_LILLY_AND_COMPANY-JP201307004141

PATIENT
  Age: 64 Year
  Sex: Female

DRUGS (2)
  1. GEMZAR [Suspect]
     Indication: TRANSITIONAL CELL CARCINOMA
     Dosage: 1000 MG/M2, OTHER
     Route: 042
     Dates: start: 201306
  2. CISPLATIN [Concomitant]
     Indication: TRANSITIONAL CELL CARCINOMA
     Dosage: 70 MG/M2, OTHER
     Route: 042
     Dates: start: 201306

REACTIONS (1)
  - Large intestine perforation [Recovered/Resolved]
